FAERS Safety Report 20045202 (Version 1)
Quarter: 2021Q4

REPORT INFORMATION
  Report Type: Spontaneous
  Country: FR (occurrence: FR)
  Receive Date: 20211108
  Receipt Date: 20211108
  Transmission Date: 20220303
  Serious: Yes (Life-Threatening, Other)
  Sender: FDA-Public Use
  Company Number: None

PATIENT
  Age: 61 Year
  Sex: Male
  Weight: 68 kg

DRUGS (3)
  1. CARBOPLATIN [Suspect]
     Active Substance: CARBOPLATIN
     Indication: Squamous cell carcinoma of the hypopharynx
     Dosage: UNK (5 AUC/3SEM)
     Route: 042
     Dates: start: 20210506, end: 20210716
  2. FLUOROURACIL [Suspect]
     Active Substance: FLUOROURACIL
     Indication: Squamous cell carcinoma of the hypopharynx
     Dosage: 4000 MILLIGRAM/SQ. METER (SUR 96H TTES LES 3 SEM)
     Route: 042
     Dates: start: 20210506, end: 20210716
  3. ERBITUX [Suspect]
     Active Substance: CETUXIMAB
     Indication: Squamous cell carcinoma of the hypopharynx
     Dosage: 400 MILLIGRAM/SQ. METER, BIWEEKLY
     Route: 042
     Dates: start: 20210506, end: 20210716

REACTIONS (1)
  - Enteritis [Recovering/Resolving]

NARRATIVE: CASE EVENT DATE: 20210719
